FAERS Safety Report 4829216-7 (Version None)
Quarter: 2005Q4

REPORT INFORMATION
  Report Type: 
  Country: None (occurrence: None)
  Receive Date: 20051116
  Receipt Date: 20051103
  Transmission Date: 20060501
  Serious: Yes (Disabling, Other)
  Sender: FDA-Public Use
  Company Number: CH-BRISTOL-MYERS SQUIBB COMPANY-13166764

PATIENT
  Age: 36 Year
  Sex: Female

DRUGS (6)
  1. REYATAZ [Suspect]
     Indication: HIV INFECTION
     Route: 048
     Dates: start: 20050912
  2. LAMIVUDINE [Concomitant]
     Dates: start: 20050912
  3. VIREAD [Concomitant]
     Dates: start: 20050912
  4. XANAX [Concomitant]
  5. CITALOPRAM [Concomitant]
  6. TRITTICO [Concomitant]

REACTIONS (4)
  - AGGRESSION [None]
  - CONFUSIONAL STATE [None]
  - DISORIENTATION [None]
  - PERSECUTORY DELUSION [None]
